FAERS Safety Report 19581426 (Version 2)
Quarter: 2022Q1

REPORT INFORMATION
  Report Type: Spontaneous
  Country: US (occurrence: US)
  Receive Date: 20210719
  Receipt Date: 20220322
  Transmission Date: 20220424
  Serious: No
  Sender: FDA-Public Use
  Company Number: US-TAKEDA-2021TUS044491

PATIENT
  Sex: Female
  Weight: 104 kg

DRUGS (9)
  1. TRINTELLIX [Suspect]
     Active Substance: VORTIOXETINE HYDROBROMIDE
     Indication: Depression
     Dosage: 5 MILLIGRAM, QD
     Route: 065
  2. TRINTELLIX [Suspect]
     Active Substance: VORTIOXETINE HYDROBROMIDE
     Indication: Anxiety
     Dosage: 2.5 MILLIGRAM
     Route: 065
     Dates: end: 20211115
  3. TRINTELLIX [Suspect]
     Active Substance: VORTIOXETINE HYDROBROMIDE
     Dosage: 3.3 MILLIGRAM
     Route: 065
  4. TRINTELLIX [Suspect]
     Active Substance: VORTIOXETINE HYDROBROMIDE
     Dosage: 2.5 MILLIGRAM, QD
     Route: 065
  5. TRINTELLIX [Suspect]
     Active Substance: VORTIOXETINE HYDROBROMIDE
     Dosage: UNK
     Route: 065
     Dates: start: 20220120
  6. TRINTELLIX [Suspect]
     Active Substance: VORTIOXETINE HYDROBROMIDE
     Dosage: 1.25 MILLIGRAM,QD
     Route: 065
     Dates: start: 20220201, end: 20220208
  7. ESTRADIOL VALERATE [Concomitant]
     Active Substance: ESTRADIOL VALERATE
     Dosage: 2.5 MILLIGRAM, QD
     Route: 030
  8. PROGESTERONE [Concomitant]
     Active Substance: PROGESTERONE
     Dosage: UNK UNK, QD
     Route: 065
  9. ADEMETIONINE [Concomitant]
     Active Substance: ADEMETIONINE
     Route: 065

REACTIONS (12)
  - Feeling jittery [Unknown]
  - Underdose [Unknown]
  - Paraesthesia oral [Unknown]
  - Retching [Unknown]
  - Salivary hypersecretion [Unknown]
  - Disorientation [Unknown]
  - Depression [Recovering/Resolving]
  - Wrong technique in product usage process [Unknown]
  - Nausea [Unknown]
  - Dizziness [Unknown]
  - Urticaria [Recovering/Resolving]
  - Adverse drug reaction [Recovering/Resolving]
